FAERS Safety Report 7592178-6 (Version None)
Quarter: 2011Q3

REPORT INFORMATION
  Report Type: 
  Country: None (occurrence: None)
  Receive Date: 20110705
  Receipt Date: 20110705
  Transmission Date: 20111222
  Serious: Yes (Other)
  Sender: FDA-Public Use
  Company Number: None

PATIENT
  Sex: Female
  Weight: 53.5244 kg

DRUGS (1)
  1. TERCONAZOLE [Suspect]
     Indication: FUNGAL INFECTION
     Dosage: 80 MG ONE AT BEDTIME VAG
     Route: 067
     Dates: start: 20110702, end: 20110703

REACTIONS (5)
  - CHILLS [None]
  - HEADACHE [None]
  - PYREXIA [None]
  - HYPERSOMNIA [None]
  - ASTHENIA [None]
